FAERS Safety Report 11409700 (Version 1)
Quarter: 2015Q3

REPORT INFORMATION
  Report Type: Spontaneous
  Country: US (occurrence: None)
  Receive Date: 20150820
  Receipt Date: 20150820
  Transmission Date: 20151125
  Serious: Yes (Death, Hospitalization)
  Sender: FDA-Public Use
  Company Number: None

PATIENT
  Age: 89 Year
  Sex: Male
  Weight: 92 kg

DRUGS (8)
  1. DABIGATRAN 150MG [Suspect]
     Active Substance: DABIGATRAN
     Indication: ATRIAL FIBRILLATION
     Route: 048
     Dates: start: 20150723, end: 20150806
  2. ASPIRIN. [Concomitant]
     Active Substance: ASPIRIN
  3. FUROSEMIDE. [Concomitant]
     Active Substance: FUROSEMIDE
  4. LOVASTATIN. [Concomitant]
     Active Substance: LOVASTATIN
  5. IPRATROPIUM [Concomitant]
     Active Substance: IPRATROPIUM
  6. POTASSIUM CHLORIDE. [Concomitant]
     Active Substance: POTASSIUM CHLORIDE
  7. TRIAMCINOLONE ACETONIDE. [Concomitant]
     Active Substance: TRIAMCINOLONE ACETONIDE
  8. METOPROLOL TARTRATE. [Concomitant]
     Active Substance: METOPROLOL TARTRATE

REACTIONS (5)
  - Unresponsive to stimuli [None]
  - Acute myocardial infarction [None]
  - Impaired healing [None]
  - Dyspnoea [None]
  - Blood creatinine increased [None]

NARRATIVE: CASE EVENT DATE: 20150803
